FAERS Safety Report 9291293 (Version 1)
Quarter: 2013Q2

REPORT INFORMATION
  Report Type: Spontaneous
  Country: US (occurrence: US)
  Receive Date: 20130515
  Receipt Date: 20130515
  Transmission Date: 20140414
  Serious: No
  Sender: FDA-Public Use
  Company Number: US-B.I. PHARMACEUTICALS,INC./RIDGEFIELD-2013-BI-13369BP

PATIENT
  Age: 62 Year
  Sex: Male

DRUGS (12)
  1. PRADAXA [Suspect]
     Indication: CEREBROVASCULAR ACCIDENT PROPHYLAXIS
     Dosage: 300 MG
     Route: 048
     Dates: start: 20130409
  2. PRADAXA [Suspect]
     Indication: ATRIAL FIBRILLATION
  3. CIALIS [Concomitant]
     Indication: ERECTILE DYSFUNCTION
  4. FOLTX [Concomitant]
     Indication: HYPERHOMOCYSTEINAEMIA
  5. GLIMEPIRIDE [Concomitant]
     Indication: TYPE 2 DIABETES MELLITUS
  6. JANUVIA [Concomitant]
     Indication: TYPE 2 DIABETES MELLITUS
  7. METOPROLOL [Concomitant]
     Indication: ATRIAL FIBRILLATION
  8. PRAVASTATIN [Concomitant]
     Indication: HYPERLIPIDAEMIA
  9. TESTIM [Concomitant]
     Indication: BLOOD TESTOSTERONE DECREASED
  10. SYMBICORT [Concomitant]
     Indication: ASTHMA
  11. MULTIVITAMIN [Concomitant]
  12. VITAMIN D3 [Concomitant]

REACTIONS (1)
  - Eye pruritus [Not Recovered/Not Resolved]
